FAERS Safety Report 18732264 (Version 2)
Quarter: 2021Q1

REPORT INFORMATION
  Report Type: Spontaneous
  Country: US (occurrence: US)
  Receive Date: 20210112
  Receipt Date: 20210127
  Transmission Date: 20210419
  Serious: No
  Sender: FDA-Public Use
  Company Number: US-TEVA-2021-US-1866714

PATIENT
  Age: 75 Year
  Sex: Male

DRUGS (2)
  1. TRAMADOL TEVA [Suspect]
     Active Substance: TRAMADOL
     Route: 065
  2. TRAMADOL TEVA [Suspect]
     Active Substance: TRAMADOL
     Indication: PAIN IN EXTREMITY
     Dosage: 50 MILLIGRAM DAILY;
     Route: 065
     Dates: start: 20201231, end: 20210102

REACTIONS (4)
  - Pain [Recovered/Resolved]
  - Drug ineffective [Unknown]
  - Suspected product quality issue [Unknown]
  - Inappropriate schedule of product administration [Unknown]

NARRATIVE: CASE EVENT DATE: 20201231
